FAERS Safety Report 5759428-X (Version None)
Quarter: 2008Q2

REPORT INFORMATION
  Report Type: 
  Country: None (occurrence: None)
  Receive Date: 20080605
  Receipt Date: 20080603
  Transmission Date: 20081010
  Serious: Yes (Death)
  Sender: FDA-Public Use
  Company Number: FR-BRISTOL-MYERS SQUIBB COMPANY-14202378

PATIENT
  Age: 43 Year
  Sex: Male

DRUGS (3)
  1. ABILIFY [Suspect]
     Indication: BIPOLAR DISORDER
     Route: 048
     Dates: start: 20080426
  2. DEPAKOTE [Concomitant]
     Indication: BIPOLAR DISORDER
     Route: 048
  3. VALIUM [Concomitant]
     Route: 048

REACTIONS (1)
  - SUDDEN DEATH [None]
